FAERS Safety Report 7986761-3 (Version None)
Quarter: 2011Q4

REPORT INFORMATION
  Report Type: 
  Country: None (occurrence: None)
  Receive Date: 20111216
  Receipt Date: 20110223
  Transmission Date: 20120403
  Serious: No
  Sender: FDA-Public Use
  Company Number: US-BRISTOL-MYERS SQUIBB COMPANY-15564321

PATIENT

DRUGS (1)
  1. ABILIFY [Suspect]
     Indication: AUTISM

REACTIONS (2)
  - FATIGUE [None]
  - SEDATION [None]
